FAERS Safety Report 6925127-1 (Version None)
Quarter: 2010Q3

REPORT INFORMATION
  Report Type: 
  Country: None (occurrence: None)
  Receive Date: 20100816
  Receipt Date: 20100804
  Transmission Date: 20110219
  Serious: Yes (Other)
  Sender: FDA-Public Use
  Company Number: US-PFIZER INC-2010098741

PATIENT
  Sex: Female
  Weight: 102 kg

DRUGS (10)
  1. TIKOSYN [Suspect]
     Indication: CARDIAC PACEMAKER INSERTION
     Dosage: 500 UG, 2X/DAY
     Route: 048
     Dates: start: 20091108, end: 20091201
  2. TIKOSYN [Suspect]
     Dosage: 250 UG, 2X/DAY
     Route: 048
     Dates: start: 20091201, end: 20100701
  3. TIKOSYN [Suspect]
     Dosage: 500 UG, 1X/DAY
     Route: 048
     Dates: start: 20100701, end: 20100701
  4. TIKOSYN [Suspect]
     Dosage: 250 UG, 2X/DAY
     Route: 048
     Dates: start: 20100701
  5. METOPROLOL [Concomitant]
     Indication: HYPERTENSION
     Dosage: UNK, 3X/DAY
  6. VALSARTAN [Concomitant]
     Dosage: UNK, DAILY
  7. POTASSIUM [Concomitant]
     Dosage: 200 MG, DAILY
     Route: 048
  8. ACETYLSALICYLIC ACID [Concomitant]
     Dosage: 81 MG, DAILY
  9. MULTI-VITAMINS [Concomitant]
     Dosage: UNK
  10. CALCIUM/VITAMINS NOS [Concomitant]
     Dosage: UNK

REACTIONS (2)
  - INAPPROPRIATE SCHEDULE OF DRUG ADMINISTRATION [None]
  - THYROID DISORDER [None]
